FAERS Safety Report 7224694-0 (Version None)
Quarter: 2011Q1

REPORT INFORMATION
  Report Type: 
  Country: None (occurrence: None)
  Receive Date: 20110106
  Receipt Date: 20110106
  Transmission Date: 20110831
  Serious: No
  Sender: FDA-Public Use
  Company Number: None

PATIENT
  Age: 34 Year
  Sex: Female
  Weight: 65.7716 kg

DRUGS (1)
  1. FLUOXETINE [Suspect]
     Indication: ANXIETY
     Dosage: 20MG ONCE A DAY PO
     Route: 048
     Dates: start: 20101217, end: 20101225

REACTIONS (2)
  - TREMOR [None]
  - TINNITUS [None]
